FAERS Safety Report 12177924 (Version 1)
Quarter: 2016Q1

REPORT INFORMATION
  Report Type: Report from Study
  Country: KR (occurrence: KR)
  Receive Date: 20160314
  Receipt Date: 20160314
  Transmission Date: 20160526
  Serious: Yes (Hospitalization)
  Sender: FDA-Public Use
  Company Number: KR-JNJFOC-20160310899

PATIENT
  Age: 78 Year
  Sex: Male

DRUGS (2)
  1. RIVAROXABAN [Suspect]
     Active Substance: RIVAROXABAN
     Indication: EMBOLISM VENOUS
     Route: 048
     Dates: start: 20141104
  2. RIVAROXABAN [Suspect]
     Active Substance: RIVAROXABAN
     Indication: DEEP VEIN THROMBOSIS
     Route: 048
     Dates: start: 20141104

REACTIONS (1)
  - Toxicity to various agents [Recovered/Resolved]

NARRATIVE: CASE EVENT DATE: 20150812
